FAERS Safety Report 17579197 (Version 2)
Quarter: 2020Q1

REPORT INFORMATION
  Report Type: Spontaneous
  Country: CA (occurrence: CA)
  Receive Date: 20200325
  Receipt Date: 20200331
  Transmission Date: 20200409
  Serious: Yes (Hospitalization, Other)
  Sender: FDA-Public Use
  Company Number: CA-CELLTRION INC.-2019CA027782

PATIENT

DRUGS (5)
  1. PREDNISONE. [Concomitant]
     Active Substance: PREDNISONE
     Dosage: 30 MG, DAILY
     Route: 048
     Dates: start: 201909
  2. MEZAVANT [Concomitant]
     Active Substance: MESALAMINE
     Dosage: 1.2 G, 4X/DAY (TAKE 4 TIMES)
     Route: 048
     Dates: start: 2015, end: 2019
  3. INFLECTRA [Suspect]
     Active Substance: INFLIXIMAB-DYYB
     Dosage: 300 MG, EVERY 0, 2, 6 WEEKS THEN EVERY 8 WEEKS
     Route: 042
     Dates: start: 20191218
  4. INFLECTRA [Suspect]
     Active Substance: INFLIXIMAB-DYYB
     Dosage: 300 MG, EVERY 0, 2, 6 WEEKS THEN EVERY 8 WEEKS
     Route: 042
     Dates: start: 20200312
  5. INFLECTRA [Suspect]
     Active Substance: INFLIXIMAB-DYYB
     Indication: COLITIS ULCERATIVE
     Dosage: 300 MG, EVERY 0, 2, 6 WEEKS THEN EVERY 8 WEEKS
     Route: 042
     Dates: start: 20191204, end: 20200312

REACTIONS (18)
  - Haematochezia [Unknown]
  - Clostridium difficile infection [Unknown]
  - Syncope [Recovered/Resolved]
  - Body temperature increased [Unknown]
  - Body temperature decreased [Unknown]
  - Diarrhoea [Not Recovered/Not Resolved]
  - Respiratory rate increased [Unknown]
  - Pallor [Unknown]
  - Anal stenosis [Not Recovered/Not Resolved]
  - Blood pressure fluctuation [Unknown]
  - Haemorrhoids [Unknown]
  - Pain [Not Recovered/Not Resolved]
  - Feeling cold [Unknown]
  - Heart rate irregular [Unknown]
  - Oxygen saturation decreased [Unknown]
  - Anal fissure [Not Recovered/Not Resolved]
  - Vision blurred [Unknown]
  - Tremor [Unknown]

NARRATIVE: CASE EVENT DATE: 2019
